FAERS Safety Report 25268625 (Version 1)
Quarter: 2025Q2

REPORT INFORMATION
  Report Type: Spontaneous
  Country: US (occurrence: None)
  Receive Date: 20250502
  Receipt Date: 20250502
  Transmission Date: 20250717
  Serious: No
  Sender: FDA-CTU
  Company Number: None

PATIENT
  Age: 63 Year
  Sex: Male

DRUGS (2)
  1. ABIRATERONE ACETATE [Suspect]
     Active Substance: ABIRATERONE ACETATE
     Dosage: 1 MG DAILY ORAL
     Route: 048
     Dates: start: 20230801, end: 20250501
  2. ZYTIGA [Concomitant]
     Active Substance: ABIRATERONE ACETATE
     Dates: start: 20230801, end: 20250501

REACTIONS (4)
  - Hot flush [None]
  - Fatigue [None]
  - Anxiety [None]
  - Brain fog [None]
